FAERS Safety Report 25227266 (Version 1)
Quarter: 2025Q2

REPORT INFORMATION
  Report Type: Spontaneous
  Country: US (occurrence: US)
  Receive Date: 20250422
  Receipt Date: 20250422
  Transmission Date: 20250717
  Serious: Yes (Hospitalization)
  Sender: SYMOGEN
  Company Number: US-PARTNER THERAPEUTICS-2025PTX00032

PATIENT
  Age: 3 Year
  Sex: Female

DRUGS (2)
  1. LEUKINE [Suspect]
     Active Substance: SARGRAMOSTIM
     Indication: Adrenal gland cancer
     Dates: start: 20250405
  2. LEUKINE [Suspect]
     Active Substance: SARGRAMOSTIM
     Indication: Chemotherapy

REACTIONS (3)
  - Blood potassium decreased [Unknown]
  - Gastroenteritis viral [Unknown]
  - Off label use [Unknown]

NARRATIVE: CASE EVENT DATE: 20250401
